FAERS Safety Report 17711351 (Version 1)
Quarter: 2020Q2

REPORT INFORMATION
  Report Type: Spontaneous
  Country: BR (occurrence: BR)
  Receive Date: 20200427
  Receipt Date: 20200427
  Transmission Date: 20200714
  Serious: Yes (Other)
  Sender: FDA-Public Use
  Company Number: NVSC2020BR097118

PATIENT
  Sex: Female
  Weight: 66 kg

DRUGS (2)
  1. CONCARDIO [Concomitant]
     Active Substance: BISOPROLOL FUMARATE
     Indication: CARDIAC FAILURE
     Dosage: 1 DF, QD (STARTED 3 MONTHS AGO)
     Route: 048
  2. ENTRESTO [Suspect]
     Active Substance: SACUBITRIL\VALSARTAN
     Indication: CARDIAC FAILURE
     Dosage: 200 MG (97 MG OF SACUBITRIL, 103 MG OF VALSARTAN)
     Route: 048
     Dates: start: 2016

REACTIONS (5)
  - Psoriasis [Not Recovered/Not Resolved]
  - Fluid retention [Recovering/Resolving]
  - Bedridden [Not Recovered/Not Resolved]
  - Swelling [Recovering/Resolving]
  - Peripheral swelling [Recovering/Resolving]
